FAERS Safety Report 14903971 (Version 1)
Quarter: 2018Q2

REPORT INFORMATION
  Report Type: Spontaneous
  Country: US (occurrence: US)
  Receive Date: 20180516
  Receipt Date: 20180516
  Transmission Date: 20180711
  Serious: No
  Sender: FDA-Public Use
  Company Number: US-COLLEGIUM PHARMACEUTICAL, INC.-2018CGM00099

PATIENT
  Age: 50 Year
  Sex: Female
  Weight: 95.24 kg

DRUGS (2)
  1. XTAMPZA ER [Suspect]
     Active Substance: OXYCODONE
     Indication: LUMBAR RADICULOPATHY
     Dosage: 9 MG, 2X/DAY
     Route: 048
     Dates: start: 20180209, end: 20180228
  2. OXYCODONE [Concomitant]
     Active Substance: OXYCODONE

REACTIONS (2)
  - Euphoric mood [Recovered/Resolved]
  - Vomiting [Recovered/Resolved]

NARRATIVE: CASE EVENT DATE: 201802
